FAERS Safety Report 4474204-6 (Version None)
Quarter: 2004Q4

REPORT INFORMATION
  Report Type: 
  Country: None (occurrence: None)
  Receive Date: 20041008
  Receipt Date: 20040928
  Transmission Date: 20050328
  Serious: Yes (Hospitalization, Congenital Anomaly)
  Sender: FDA-Public Use
  Company Number: HQWYE432929SEP04

PATIENT
  Sex: Female

DRUGS (2)
  1. EFFEXOR [Suspect]
     Dosage: 150 MG 1X PER 1 DAY, TRANSPLACENTAL/THROUGHOUT PREGNANCY
     Route: 064
  2. MAGNESIUM SULFATE [Suspect]

REACTIONS (9)
  - BRADYCARDIA NEONATAL [None]
  - CHONDRODYSTROPHY [None]
  - CONGENITAL ANOMALY [None]
  - CONGENITAL MYOPATHY [None]
  - DRUG EXPOSURE DURING PREGNANCY [None]
  - HYPOCHONDROPLASIA [None]
  - HYPOTONIA NEONATAL [None]
  - MUSCULAR DYSTROPHY [None]
  - NEONATAL APNOEIC ATTACK [None]
